FAERS Safety Report 10342677 (Version 3)
Quarter: 2014Q3

REPORT INFORMATION
  Report Type: Spontaneous
  Country: US (occurrence: IT)
  Receive Date: 20140725
  Receipt Date: 20140804
  Transmission Date: 20150326
  Serious: Yes (Death)
  Sender: FDA-Public Use
  Company Number: IT-FRI-1000069249

PATIENT
  Age: 38 Year
  Sex: Female

DRUGS (10)
  1. BRUFEN [Concomitant]
     Active Substance: IBUPROFEN
     Indication: HEADACHE
  2. XENICAL [Concomitant]
     Active Substance: ORLISTAT
     Indication: WEIGHT DECREASED
  3. ASENAPINE [Suspect]
     Active Substance: ASENAPINE
     Indication: BIPOLAR DISORDER
     Dosage: 5 MG
     Route: 060
     Dates: start: 20140401, end: 20140601
  4. NEXIUM [Concomitant]
     Active Substance: ESOMEPRAZOLE MAGNESIUM
  5. TALOFEN [Suspect]
     Active Substance: PROMAZINE HYDROCHLORIDE
     Route: 048
  6. EUTIROX [Concomitant]
     Active Substance: LEVOTHYROXINE SODIUM
  7. EFFEXOR [Suspect]
     Active Substance: VENLAFAXINE HYDROCHLORIDE
     Indication: BIPOLAR DISORDER
     Dosage: 150 MG
     Route: 048
     Dates: start: 201310, end: 201401
  8. DELORAZEPAM [Suspect]
     Active Substance: DELORAZEPAM
  9. ASENAPINE [Suspect]
     Active Substance: ASENAPINE
     Dosage: 10 MG
     Route: 060
     Dates: start: 20140602, end: 20140713
  10. ZARELIS [Suspect]
     Active Substance: VENLAFAXINE HYDROCHLORIDE
     Indication: BIPOLAR DISORDER
     Dosage: 225 MG
     Route: 048
     Dates: start: 20140101, end: 20140713

REACTIONS (1)
  - Death [Fatal]

NARRATIVE: CASE EVENT DATE: 20140713
